FAERS Safety Report 7273251-9 (Version None)
Quarter: 2011Q1

REPORT INFORMATION
  Report Type: 
  Country: None (occurrence: None)
  Receive Date: 20110203
  Receipt Date: 20110123
  Transmission Date: 20110831
  Serious: Yes (Death, Hospitalization)
  Sender: FDA-Public Use
  Company Number: BR-SANOFI-AVENTIS-2011SA004491

PATIENT
  Sex: Female
  Weight: 54 kg

DRUGS (5)
  1. LANTUS [Suspect]
     Route: 058
  2. BUCLINA [Concomitant]
     Indication: INCREASED APPETITE
     Route: 048
  3. BIOTONICO FONTOURA [Suspect]
     Dosage: 1 SPOON
     Route: 048
  4. BUCLIZINE [Concomitant]
     Indication: INCREASED APPETITE
     Route: 048
  5. LANTUS [Suspect]
     Route: 058

REACTIONS (8)
  - VOMITING [None]
  - DIZZINESS [None]
  - ASTHENIA [None]
  - DEATH [None]
  - OFF LABEL USE [None]
  - HEADACHE [None]
  - RETCHING [None]
  - FEELING ABNORMAL [None]
